FAERS Safety Report 8963835 (Version 1)
Quarter: 2012Q4

REPORT INFORMATION
  Report Type: 
  Country: US (occurrence: US)
  Receive Date: 20121214
  Receipt Date: 20121214
  Transmission Date: 20130627
  Serious: No
  Sender: FDA-Public Use
  Company Number: US-009507513-1212USA005484

PATIENT
  Age: 85 Year
  Sex: Male

DRUGS (1)
  1. FINASTERIDE [Suspect]
     Indication: PROSTATIC DISORDER
     Dosage: 5 mg,qd
     Route: 048
     Dates: start: 20121114

REACTIONS (2)
  - Micturition urgency [Not Recovered/Not Resolved]
  - Micturition disorder [Not Recovered/Not Resolved]
